FAERS Safety Report 24645543 (Version 1)
Quarter: 2024Q4

REPORT INFORMATION
  Report Type: Spontaneous
  Country: US (occurrence: US)
  Receive Date: 20241121
  Receipt Date: 20241121
  Transmission Date: 20250114
  Serious: Yes (Death, Hospitalization, Other)
  Sender: ZYDUS PHARM
  Company Number: US-CADILA HEALTHCARE LIMITED-US-ZYDUS-114758

PATIENT

DRUGS (4)
  1. FENTANYL [Suspect]
     Active Substance: FENTANYL
     Indication: Product used for unknown indication
     Dosage: UNK
     Route: 065
  2. NALOXONE [Concomitant]
     Active Substance: NALOXONE
     Indication: Respiration abnormal
     Dosage: UNK
     Route: 045
  3. NALOXONE [Concomitant]
     Active Substance: NALOXONE
     Dosage: UNK
     Route: 042
  4. NALOXONE [Concomitant]
     Active Substance: NALOXONE
     Dosage: UNK
     Route: 030

REACTIONS (9)
  - CHANTER syndrome [Fatal]
  - Necrosis [Fatal]
  - Necrosis [Fatal]
  - Diffuse axonal injury [Fatal]
  - Infarction [Fatal]
  - Swelling [Fatal]
  - Haemorrhage [Fatal]
  - Unresponsive to stimuli [Fatal]
  - Toxicity to various agents [Fatal]
